FAERS Safety Report 12959081 (Version 1)
Quarter: 2016Q4

REPORT INFORMATION
  Report Type: Spontaneous
  Country: US (occurrence: US)
  Receive Date: 20161121
  Receipt Date: 20161121
  Transmission Date: 20170207
  Serious: No
  Sender: FDA-Public Use
  Company Number: US-JNJFOC-20161016954

PATIENT
  Age: 75 Year
  Sex: Male

DRUGS (2)
  1. IMBRUVICA [Suspect]
     Active Substance: IBRUTINIB
     Indication: PANCYTOPENIA
     Route: 065
     Dates: start: 20150430
  2. IMBRUVICA [Suspect]
     Active Substance: IBRUTINIB
     Indication: PANCYTOPENIA
     Route: 065

REACTIONS (4)
  - Off label use [Not Recovered/Not Resolved]
  - Disease progression [Not Recovered/Not Resolved]
  - Drug tolerance [Not Recovered/Not Resolved]
  - Product use issue [Not Recovered/Not Resolved]

NARRATIVE: CASE EVENT DATE: 20150430
